FAERS Safety Report 9922130 (Version 1)
Quarter: 2014Q1

REPORT INFORMATION
  Report Type: Spontaneous
  Country: IT (occurrence: IT)
  Receive Date: 20140225
  Receipt Date: 20140225
  Transmission Date: 20141002
  Serious: Yes (Other)
  Sender: FDA-Public Use
  Company Number: PHHY2014IT021743

PATIENT
  Age: 55 Year
  Sex: Male

DRUGS (6)
  1. RASILEZ [Suspect]
     Indication: HYPERTENSION
     Dosage: 150 MG, DAY
     Route: 048
     Dates: end: 20140203
  2. PEGASYS [Suspect]
     Indication: HEPATITIS C
     Dosage: 180 UG, PER WEEK
     Route: 058
     Dates: start: 20131104
  3. LIPERIAL [Suspect]
     Indication: HYPERTRIGLYCERIDAEMIA
     Dosage: 145 MG, DAY
     Route: 048
     Dates: end: 20140203
  4. SELOKEN [Concomitant]
     Dosage: 100 MG, UNK
  5. ZESTORETIC [Concomitant]
     Dosage: UNK UKN, UNK
  6. NORVASC [Concomitant]
     Dosage: UNK UKN, UNK

REACTIONS (2)
  - Autoimmune hepatitis [Unknown]
  - Hypertransaminasaemia [Unknown]
